FAERS Safety Report 7278103-6 (Version None)
Quarter: 2011Q1

REPORT INFORMATION
  Report Type: 
  Country: None (occurrence: None)
  Receive Date: 20110207
  Receipt Date: 20110126
  Transmission Date: 20110831
  Serious: Yes (Death, Other)
  Sender: FDA-Public Use
  Company Number: JP-BAYER-201013989BYL

PATIENT
  Sex: Male
  Weight: 60.4 kg

DRUGS (3)
  1. NEXAVAR [Suspect]
     Indication: HEPATIC NEOPLASM MALIGNANT
     Dosage: 400 MG (DAILY DOSE), , ORAL
     Route: 048
     Dates: start: 20100627, end: 20100712
  2. NEXAVAR [Suspect]
     Dosage: 200 MG, QD
     Route: 048
     Dates: start: 20100814, end: 20100918
  3. NEXAVAR [Suspect]
     Dosage: 200 MG, QD
     Route: 048
     Dates: start: 20100721, end: 20100805

REACTIONS (3)
  - HEPATIC FUNCTION ABNORMAL [None]
  - GASTRIC ULCER [None]
  - HEPATIC NEOPLASM MALIGNANT [None]
